FAERS Safety Report 7618257 (Version 3)
Quarter: 2014Q2

REPORT INFORMATION
  Report Type: Spontaneous
  Country: US (occurrence: US)
  Receive Date: 20101006
  Receipt Date: 20140402
  Transmission Date: 20141212
  Serious: Yes (Hospitalization)
  Sender: FDA-Public Use
  Company Number: US-BAYER-201035443NA

PATIENT
  Age: 20 Year
  Sex: Female
  Weight: 86 kg

DRUGS (3)
  1. YAZ [Suspect]
     Indication: CONTRACEPTION
     Dosage: UNK UNK, UNK
     Route: 048
     Dates: start: 2007
  2. YASMIN [Suspect]
     Indication: CONTRACEPTION
     Dosage: UNK UNK, UNK
     Route: 048
     Dates: start: 2006, end: 20070906
  3. PHENERGAN [Concomitant]
     Dosage: UNK
     Dates: start: 20070905

REACTIONS (4)
  - Cholelithiasis [Unknown]
  - Cholecystitis [None]
  - Nephrocalcinosis [None]
  - Nephrolithiasis [None]
